FAERS Safety Report 9933148 (Version 1)
Quarter: 2014Q1

REPORT INFORMATION
  Report Type: Spontaneous
  Country: US (occurrence: US)
  Receive Date: 20140228
  Receipt Date: 20140228
  Transmission Date: 20141002
  Serious: No
  Sender: FDA-Public Use
  Company Number: US-GLAXOSMITHKLINE-A1051344A

PATIENT
  Sex: Female

DRUGS (2)
  1. LAMICTAL [Suspect]
     Indication: PARALYSIS
     Route: 065
     Dates: start: 1991, end: 201309
  2. LORAZEPAM [Concomitant]

REACTIONS (2)
  - Rash [Recovered/Resolved]
  - Tinnitus [Recovered/Resolved]
